FAERS Safety Report 24446026 (Version 1)
Quarter: 2024Q4

REPORT INFORMATION
  Report Type: Other
  Country: FR (occurrence: FR)
  Receive Date: 20241016
  Receipt Date: 20241016
  Transmission Date: 20250115
  Serious: Yes (Hospitalization, Other)
  Sender: B BRAUN
  Company Number: FR-B.Braun Medical Inc.-2163176

PATIENT
  Age: 77 Year
  Sex: Female

DRUGS (6)
  1. ACETAMINOPHEN [Suspect]
     Active Substance: ACETAMINOPHEN
     Indication: Arthralgia
  2. FLUCLOXACILLIN [Suspect]
     Active Substance: FLUCLOXACILLIN
  3. CEFAZOLIN [Concomitant]
     Active Substance: CEFAZOLIN
  4. PIPERACILLIN AND TAZOBACTAM [Concomitant]
     Active Substance: PIPERACILLIN SODIUM\TAZOBACTAM SODIUM
  5. OXYCODONE [Concomitant]
     Active Substance: OXYCODONE
  6. AMOXICILLIN\CLAVULANIC ACID [Concomitant]
     Active Substance: AMOXICILLIN\CLAVULANIC ACID

REACTIONS (2)
  - Pyroglutamic acidosis [Recovered/Resolved]
  - Off label use [Recovered/Resolved]
